FAERS Safety Report 7018959-5 (Version None)
Quarter: 2010Q3

REPORT INFORMATION
  Report Type: 
  Country: None (occurrence: None)
  Receive Date: 20100928
  Receipt Date: 20100920
  Transmission Date: 20110219
  Serious: No
  Sender: FDA-Public Use
  Company Number: US-B.I. PHARMACEUTICALS,INC./RIDGEFIELD-2010-BP-10618BP

PATIENT
  Sex: Male

DRUGS (2)
  1. MIRAPEX [Suspect]
     Indication: PARKINSON'S DISEASE
     Route: 048
     Dates: start: 20100701, end: 20100901
  2. MIRAPEX [Suspect]
     Dosage: 2.25 MG
     Route: 048

REACTIONS (3)
  - ABDOMINAL PAIN [None]
  - HALLUCINATION, AUDITORY [None]
  - SLEEP DISORDER [None]
